FAERS Safety Report 13336883 (Version 3)
Quarter: 2017Q3

REPORT INFORMATION
  Report Type: Spontaneous
  Country: US (occurrence: US)
  Receive Date: 20170315
  Receipt Date: 20170731
  Transmission Date: 20171127
  Serious: No
  Sender: FDA-Public Use
  Company Number: US-PFIZER INC-2017104294

PATIENT
  Age: 66 Year
  Sex: Female

DRUGS (3)
  1. DIAZEPAM. [Suspect]
     Active Substance: DIAZEPAM
     Indication: ANXIETY
     Dosage: 10 MG, 2X/DAY AS NEEDED
     Route: 048
     Dates: start: 20150109, end: 20160815
  2. TYLENOL [Concomitant]
     Active Substance: ACETAMINOPHEN
  3. XALATAN [Concomitant]
     Active Substance: LATANOPROST
     Indication: GLAUCOMA
     Route: 047

REACTIONS (6)
  - Drug hypersensitivity [Unknown]
  - Migraine [Recovered/Resolved]
  - Dizziness [Unknown]
  - Abdominal pain upper [Recovered/Resolved]
  - Tremor [Unknown]
  - Asthenia [Recovered/Resolved]

NARRATIVE: CASE EVENT DATE: 20160815
